FAERS Safety Report 20136320 (Version 1)
Quarter: 2021Q4

REPORT INFORMATION
  Report Type: Spontaneous
  Country: None (occurrence: US)
  Receive Date: 20211201
  Receipt Date: 20211201
  Transmission Date: 20220303
  Serious: No
  Sender: FDA-Public Use
  Company Number: US-Nexgen Pharma, Inc.-2122550

PATIENT
  Age: 13 Year
  Sex: Male

DRUGS (3)
  1. CHENODAL [Suspect]
     Active Substance: CHENODIOL
     Indication: Glycogen storage disorder
     Route: 048
     Dates: start: 20161020
  2. Antibiotics, Topical [Concomitant]
     Route: 061
  3. Antibiotics, Oral [Concomitant]
     Route: 048

REACTIONS (1)
  - Cyst [Unknown]
